FAERS Safety Report 21360261 (Version 1)
Quarter: 2022Q3

REPORT INFORMATION
  Report Type: Spontaneous
  Country: US (occurrence: US)
  Receive Date: 20220921
  Receipt Date: 20220921
  Transmission Date: 20221026
  Serious: No
  Sender: FDA-Public Use
  Company Number: US-VERTEX PHARMACEUTICALS-2022-013657

PATIENT
  Age: 29 Year

DRUGS (5)
  1. TRIKAFTA [Suspect]
     Active Substance: ELEXACAFTOR\IVACAFTOR\TEZACAFTOR
     Indication: Cystic fibrosis
     Dosage: UNK
     Route: 048
  2. PULMOZYME [Concomitant]
     Active Substance: DORNASE ALFA
  3. TOBRAMYCIN [Concomitant]
     Active Substance: TOBRAMYCIN
  4. CREON [Concomitant]
     Active Substance: PANCRELIPASE AMYLASE\PANCRELIPASE LIPASE\PANCRELIPASE PROTEASE
  5. AZITHROMYCIN [Concomitant]
     Active Substance: AZITHROMYCIN

REACTIONS (7)
  - Pneumonia [Unknown]
  - General physical health deterioration [Unknown]
  - Emotional disorder [Not Recovered/Not Resolved]
  - Helplessness [Not Recovered/Not Resolved]
  - Frustration tolerance decreased [Not Recovered/Not Resolved]
  - Fatigue [Not Recovered/Not Resolved]
  - Feeling abnormal [Not Recovered/Not Resolved]
